FAERS Safety Report 7866968-6 (Version None)
Quarter: 2011Q4

REPORT INFORMATION
  Report Type: 
  Country: None (occurrence: None)
  Receive Date: 20111028
  Receipt Date: 20111014
  Transmission Date: 20120403
  Serious: Yes (Hospitalization)
  Sender: FDA-Public Use
  Company Number: CH-ROCHE-1006376

PATIENT
  Age: 83 Year
  Sex: Female

DRUGS (9)
  1. DIGOXIN-SPECIFIC ANTIBODY FRAGMENTS [Suspect]
     Indication: PRODUCT USED FOR UNKNOWN INDICATION
     Route: 048
     Dates: end: 20110329
  2. DIGOXIN-SPECIFIC ANTIBODY FRAGMENTS [Suspect]
     Route: 048
     Dates: start: 20110404
  3. IMOVANE [Concomitant]
  4. MARCUMAR [Concomitant]
  5. TORSEMIDE [Suspect]
  6. NITRODERM [Concomitant]
  7. CORVATON [Concomitant]
  8. CANDESARTAN CILEXETIL [Concomitant]
  9. TORSEMIDE [Suspect]
     Indication: PRODUCT USED FOR UNKNOWN INDICATION
     Route: 048

REACTIONS (6)
  - TOXICITY TO VARIOUS AGENTS [None]
  - DRUG LEVEL INCREASED [None]
  - DRUG INTERACTION [None]
  - NAUSEA [None]
  - DIARRHOEA [None]
  - VOMITING [None]
